FAERS Safety Report 6794769-9 (Version None)
Quarter: 2010Q2

REPORT INFORMATION
  Report Type: 
  Country: None (occurrence: None)
  Receive Date: 20100625
  Receipt Date: 20100618
  Transmission Date: 20101027
  Serious: Yes (Hospitalization)
  Sender: FDA-Public Use
  Company Number: US-BRISTOL-MYERS SQUIBB COMPANY-15155914

PATIENT
  Age: 44 Year
  Sex: Female

DRUGS (1)
  1. ORENCIA [Suspect]
     Indication: RHEUMATOID ARTHRITIS
     Dosage: INTERRUPTED ON 29MAY09, RESTARTED ON OCT'09,HELD IN MAR-2010, REST'D 19MAY09 AND DISC'4 ON 14JUN10
     Dates: start: 20080512, end: 20100614

REACTIONS (6)
  - DIARRHOEA [None]
  - NAUSEA [None]
  - PALPITATIONS [None]
  - URTICARIA [None]
  - VOMITING [None]
  - WEIGHT DECREASED [None]
